FAERS Safety Report 9481792 (Version 1)
Quarter: 2013Q3

REPORT INFORMATION
  Report Type: Spontaneous
  Country: CA (occurrence: CA)
  Receive Date: 20130828
  Receipt Date: 20130828
  Transmission Date: 20140515
  Serious: Yes (Other)
  Sender: FDA-Public Use
  Company Number: CA-AMGEN-KDL233022

PATIENT
  Age: 78 Year
  Sex: Female

DRUGS (6)
  1. ENBREL [Suspect]
     Indication: RHEUMATOID ARTHRITIS
     Dosage: 25 MG, 2 TIMES/WK
     Route: 058
     Dates: start: 20030612
  2. WARFARIN [Concomitant]
     Dosage: 2.5 MG, UNK
  3. ATORVASTATIN CALCIUM [Concomitant]
  4. METOPROLOL [Concomitant]
     Dosage: 50 MG, UNK
  5. DIGOXIN [Concomitant]
     Dosage: .025 MG, UNK
  6. GASTROINTESTINAL MEDICATION NOS [Concomitant]

REACTIONS (6)
  - Hypoaesthesia [Unknown]
  - Thrombosis [Unknown]
  - Cardiac disorder [Unknown]
  - Gastrointestinal disorder [Unknown]
  - Blood cholesterol abnormal [Unknown]
  - Tooth extraction [Unknown]
